FAERS Safety Report 20609942 (Version 1)
Quarter: 2022Q1

REPORT INFORMATION
  Report Type: Spontaneous
  Country: FR (occurrence: FR)
  Receive Date: 20220318
  Receipt Date: 20220318
  Transmission Date: 20220423
  Serious: Yes (Hospitalization, Congenital Anomaly, Other)
  Sender: FDA-Public Use
  Company Number: FR-ABBVIE-22K-056-4321455-00

PATIENT

DRUGS (1)
  1. DEPAKOTE [Suspect]
     Active Substance: DIVALPROEX SODIUM
     Indication: Maternal exposure timing unspecified
     Route: 064

REACTIONS (20)
  - Autism spectrum disorder [Unknown]
  - Congenital infection [Unknown]
  - Speech disorder developmental [Unknown]
  - Behaviour disorder [Unknown]
  - Personal relationship issue [Unknown]
  - Fine motor skill dysfunction [Unknown]
  - Developmental delay [Unknown]
  - Loss of personal independence in daily activities [Unknown]
  - Drooling [Unknown]
  - Primary ciliary dyskinesia [Unknown]
  - Echolalia [Unknown]
  - Stereotypy [Unknown]
  - Growth retardation [Unknown]
  - Asthma [Unknown]
  - Inguinal hernia [Unknown]
  - Ear, nose and throat disorder [Unknown]
  - Hypoacusis [Unknown]
  - Phobia [Unknown]
  - Ear infection [Unknown]
  - Foetal exposure during pregnancy [Unknown]
